FAERS Safety Report 4561536-6 (Version None)
Quarter: 2005Q1

REPORT INFORMATION
  Report Type: 
  Country: None (occurrence: None)
  Receive Date: 20050121
  Receipt Date: 20050103
  Transmission Date: 20050727
  Serious: Yes (Death)
  Sender: FDA-Public Use
  Company Number: A03200500006

PATIENT
  Age: 64 Year
  Sex: Male

DRUGS (4)
  1. UROXATRAL [Suspect]
     Dosage: 10 MG OD - ORAL
     Route: 048
     Dates: start: 20041222, end: 20041223
  2. AMIODARONE HCL [Concomitant]
  3. FAMOTIDINE [Concomitant]
  4. RANITIDINE HYDROCHLORIDE [Concomitant]

REACTIONS (1)
  - TORSADE DE POINTES [None]
